FAERS Safety Report 23139074 (Version 3)
Quarter: 2023Q4

REPORT INFORMATION
  Report Type: Report from Study
  Country: BR (occurrence: BR)
  Receive Date: 20231102
  Receipt Date: 20231107
  Transmission Date: 20240110
  Serious: Yes (Hospitalization)
  Sender: FDA-Public Use
  Company Number: BR-Eisai Medical Research-EC-2023-142634

PATIENT
  Age: 63 Year
  Sex: Male
  Weight: 88.8 kg

DRUGS (7)
  1. LENVATINIB [Suspect]
     Active Substance: LENVATINIB
     Indication: Clear cell renal cell carcinoma
     Dosage: STARTING DOSE AT 20 MG, (FLUCTUATED DOSE)
     Route: 048
     Dates: start: 20220419, end: 20230612
  2. PEMBROLIZUMAB [Suspect]
     Active Substance: PEMBROLIZUMAB
     Indication: Clear cell renal cell carcinoma
     Route: 041
     Dates: start: 20220419, end: 20230323
  3. BELZUTIFAN [Suspect]
     Active Substance: BELZUTIFAN
     Indication: Clear cell renal cell carcinoma
     Route: 048
     Dates: start: 20220419, end: 20230612
  4. LOSARTAN [Concomitant]
     Active Substance: LOSARTAN
     Dates: start: 19950615
  5. HYDROCHLOROTHIAZIDE [Concomitant]
     Active Substance: HYDROCHLOROTHIAZIDE
     Dates: start: 20220511
  6. FLAVONID [Concomitant]
     Dates: start: 20211115
  7. DIPYRONE [Concomitant]
     Active Substance: DIPYRONE
     Dates: start: 20220503

REACTIONS (1)
  - Sjogren^s syndrome [Recovering/Resolving]

NARRATIVE: CASE EVENT DATE: 20230609
